FAERS Safety Report 25795325 (Version 2)
Quarter: 2025Q3

REPORT INFORMATION
  Report Type: Spontaneous
  Country: US (occurrence: US)
  Receive Date: 20250912
  Receipt Date: 20250924
  Transmission Date: 20251020
  Serious: Yes (Other)
  Sender: RANBAXY
  Company Number: US-SUN PHARMACEUTICAL INDUSTRIES LTD-2025R1-527145

PATIENT
  Age: 3 Year

DRUGS (3)
  1. VALPROATE [Suspect]
     Active Substance: VALPROIC ACID
     Indication: Epilepsy
     Dosage: 28 MILLIGRAM/KILOGRAM, QD
     Route: 065
  2. VALPROATE [Suspect]
     Active Substance: VALPROIC ACID
     Dosage: 32 MILLIGRAM/KILOGRAM, QD
     Route: 065
  3. ETHOSUXIMIDE [Concomitant]
     Active Substance: ETHOSUXIMIDE
     Indication: Epilepsy
     Dosage: 44 MILLIGRAM/KILOGRAM, QD
     Route: 065

REACTIONS (2)
  - Hypothyroidism [Recovered/Resolved]
  - Primary hypothyroidism [Recovered/Resolved]
